FAERS Safety Report 6491538-4 (Version None)
Quarter: 2009Q4

REPORT INFORMATION
  Report Type: 
  Country: None (occurrence: None)
  Receive Date: 20091211
  Receipt Date: 20091203
  Transmission Date: 20100525
  Serious: Yes (Hospitalization, Other)
  Sender: FDA-Public Use
  Company Number: BR-ABBOTT-06P-020-0345734-00

PATIENT
  Sex: Female
  Weight: 52 kg

DRUGS (8)
  1. HUMIRA [Suspect]
     Indication: RHEUMATOID ARTHRITIS
     Route: 058
     Dates: start: 20050101, end: 20060907
  2. HUMIRA [Suspect]
     Route: 058
     Dates: start: 20061019, end: 20071201
  3. HUMIRA [Suspect]
     Route: 050
     Dates: start: 20070404
  4. HUMIRA [Suspect]
     Route: 058
     Dates: end: 20081201
  5. METHOTREXATE [Concomitant]
     Indication: RHEUMATOID ARTHRITIS
     Dates: start: 19990101
  6. CHLOROQUINE PHOSPHATE [Concomitant]
     Indication: DRUG USE FOR UNKNOWN INDICATION
  7. ARAVA [Concomitant]
     Indication: DRUG USE FOR UNKNOWN INDICATION
  8. REMICADE [Concomitant]
     Indication: DRUG USE FOR UNKNOWN INDICATION

REACTIONS (10)
  - ANAEMIA [None]
  - BONE EROSION [None]
  - DEVICE FAILURE [None]
  - DEVICE RELATED INFECTION [None]
  - GAIT DISTURBANCE [None]
  - NOSOCOMIAL INFECTION [None]
  - PAIN IN EXTREMITY [None]
  - UNEQUAL LIMB LENGTH [None]
  - URINARY TRACT INFECTION [None]
  - WEIGHT DECREASED [None]
